FAERS Safety Report 8364489-8 (Version None)
Quarter: 2012Q2

REPORT INFORMATION
  Report Type: 
  Country: None (occurrence: None)
  Receive Date: 20120516
  Receipt Date: 20120510
  Transmission Date: 20120825
  Serious: Yes (Other)
  Sender: FDA-Public Use
  Company Number: JP-JNJFOC-20120511443

PATIENT
  Sex: Female
  Weight: 35 kg

DRUGS (6)
  1. SIMPONI [Suspect]
     Indication: RHEUMATOID ARTHRITIS
     Route: 058
     Dates: start: 20120214, end: 20120508
  2. MUCOSTA [Concomitant]
     Route: 048
  3. RHEUMATREX [Suspect]
     Indication: ILL-DEFINED DISORDER
     Route: 048
  4. LOXONIN [Concomitant]
     Route: 048
  5. CYTOTEC [Concomitant]
     Route: 048
  6. PREDNISOLONE [Concomitant]
     Route: 048

REACTIONS (1)
  - PNEUMONIA [None]
